FAERS Safety Report 12226263 (Version 9)
Quarter: 2016Q3

REPORT INFORMATION
  Report Type: Report from Study
  Country: CA (occurrence: CA)
  Receive Date: 20160331
  Receipt Date: 20160929
  Transmission Date: 20161109
  Serious: Yes (Other)
  Sender: FDA-Public Use
  Company Number: CA-JNJFOC-20160315643

PATIENT
  Age: 67 Year
  Sex: Female

DRUGS (1)
  1. SIMPONI [Suspect]
     Active Substance: GOLIMUMAB
     Indication: RHEUMATOID ARTHRITIS
     Route: 058
     Dates: start: 20150826

REACTIONS (7)
  - Osteomyelitis [Unknown]
  - Abscess limb [Recovered/Resolved]
  - Oropharyngeal pain [Unknown]
  - Localised infection [Recovered/Resolved]
  - Vertigo [Unknown]
  - Incisional drainage [Not Recovered/Not Resolved]
  - Cystitis [Unknown]

NARRATIVE: CASE EVENT DATE: 201603
